FAERS Safety Report 19820219 (Version 4)
Quarter: 2021Q4

REPORT INFORMATION
  Report Type: Spontaneous
  Country: AU (occurrence: AU)
  Receive Date: 20210913
  Receipt Date: 20211229
  Transmission Date: 20220303
  Serious: Yes (Other)
  Sender: FDA-Public Use
  Company Number: NVSC2021AU201266

PATIENT
  Sex: Female

DRUGS (4)
  1. CYCLOSPORINE [Suspect]
     Active Substance: CYCLOSPORINE
     Indication: Acute graft versus host disease
     Dosage: 2 MG, UNKNOWN
     Route: 048
     Dates: start: 20210224
  2. CYCLOSPORINE [Suspect]
     Active Substance: CYCLOSPORINE
     Dosage: UNK
     Route: 048
  3. MYCOPHENOLATE MOFETIL [Suspect]
     Active Substance: MYCOPHENOLATE MOFETIL
     Indication: Acute graft versus host disease
     Dosage: UNK
     Route: 065
  4. PREDNISONE [Suspect]
     Active Substance: PREDNISONE
     Indication: Acute graft versus host disease
     Dosage: UNK
     Route: 065

REACTIONS (10)
  - Neutropenic sepsis [Unknown]
  - Renal impairment [Unknown]
  - Graft versus host disease in liver [Unknown]
  - Graft versus host disease in skin [Unknown]
  - Graft versus host disease in gastrointestinal tract [Unknown]
  - Microangiopathic haemolytic anaemia [Unknown]
  - Proteinuria [Unknown]
  - Disease progression [Not Recovered/Not Resolved]
  - Therapy non-responder [Unknown]
  - Drug ineffective [Unknown]
